FAERS Safety Report 17212786 (Version 1)
Quarter: 2019Q4

REPORT INFORMATION
  Report Type: Spontaneous
  Country: US (occurrence: US)
  Receive Date: 20191205
  Receipt Date: 20191205
  Transmission Date: 20200122
  Serious: Yes (Hospitalization)
  Sender: FDA-Public Use
  Company Number: None

PATIENT
  Age: 67 Year
  Sex: Male

DRUGS (5)
  1. TEMOZOLOMIDE 140MG [Suspect]
     Active Substance: TEMOZOLOMIDE
     Route: 048
     Dates: start: 20191016
  2. TEMOZOLOMIDE5MG [Suspect]
     Active Substance: TEMOZOLOMIDE
     Indication: NON-HODGKIN^S LYMPHOMA
     Route: 048
     Dates: start: 20191016
  3. TEMOZOLOMIDE 180MG CAP [Concomitant]
     Active Substance: TEMOZOLOMIDE
  4. ONDANSETRON [Concomitant]
     Active Substance: ONDANSETRON
  5. INDETERMINATE [Concomitant]

REACTIONS (1)
  - Skin ulcer [None]
